FAERS Safety Report 8985791 (Version 1)
Quarter: 2012Q4

REPORT INFORMATION
  Report Type: 
  Country: US (occurrence: US)
  Receive Date: 20121226
  Receipt Date: 20121226
  Transmission Date: 20130627
  Serious: No
  Sender: FDA-Public Use
  Company Number: US-BAYER-2012-131324

PATIENT
  Age: 60 Year
  Sex: Male

DRUGS (1)
  1. STIVARGA [Suspect]
     Indication: METASTATIC COLON CANCER
     Dosage: 160 mg, QD
     Route: 048
     Dates: start: 20121117, end: 20121211

REACTIONS (2)
  - Rash [None]
  - Diarrhoea [None]
